FAERS Safety Report 21229259 (Version 1)
Quarter: 2022Q3

REPORT INFORMATION
  Report Type: Report from Study
  Country: BR (occurrence: BR)
  Receive Date: 20220818
  Receipt Date: 20220818
  Transmission Date: 20221027
  Serious: Yes (Other)
  Sender: FDA-Public Use
  Company Number: BR-ABBVIE-22K-020-4506111-00

PATIENT
  Age: 69 Year
  Sex: Female
  Weight: 52 kg

DRUGS (1)
  1. RINVOQ [Suspect]
     Active Substance: UPADACITINIB
     Indication: Rheumatoid arthritis
     Route: 048
     Dates: start: 20210314

REACTIONS (10)
  - Neoplasm malignant [Unknown]
  - Knee arthroplasty [Unknown]
  - Bone disorder [Unknown]
  - Osteoarthritis [Unknown]
  - Synovial fluid analysis abnormal [Unknown]
  - Grip strength decreased [Unknown]
  - Blood test abnormal [Unknown]
  - Therapeutic product effect delayed [Unknown]
  - Drug ineffective [Unknown]
  - Rheumatoid arthritis [Unknown]

NARRATIVE: CASE EVENT DATE: 20210301
